FAERS Safety Report 6134429-0 (Version None)
Quarter: 2009Q1

REPORT INFORMATION
  Report Type: 
  Country: None (occurrence: None)
  Receive Date: 20090327
  Receipt Date: 20090318
  Transmission Date: 20090719
  Serious: Yes (Other)
  Sender: FDA-Public Use
  Company Number: US-JNJCH-2009007488

PATIENT
  Age: 44 Year
  Sex: Female
  Weight: 70.3 kg

DRUGS (1)
  1. LUBRIDERM INTENSE REPAIR BODY LOTION [Suspect]
     Indication: THERAPEUTIC SKIN CARE TOPICAL
     Dosage: TEXT:^ENOUGH TO COVER AREA^ ONCE DAILY
     Route: 061

REACTIONS (2)
  - APPLICATION SITE PRURITUS [None]
  - APPLICATION SITE RASH [None]
